FAERS Safety Report 8454881-5 (Version None)
Quarter: 2012Q2

REPORT INFORMATION
  Report Type: 
  Country: None (occurrence: None)
  Receive Date: 20120621
  Receipt Date: 20120611
  Transmission Date: 20120825
  Serious: Yes (Other)
  Sender: FDA-Public Use
  Company Number: BR-SANOFI-AVENTIS-2011SA082199

PATIENT
  Age: 26 Year
  Sex: Female
  Weight: 52.2 kg

DRUGS (2)
  1. HUMALOG [Concomitant]
  2. LANTUS [Suspect]
     Dosage: 14 IU IN MORNING AND 4 IU  AT NIGHT.
     Route: 058
     Dates: start: 20111101

REACTIONS (4)
  - PRE-ECLAMPSIA [None]
  - MATERNAL EXPOSURE DURING PREGNANCY [None]
  - DRUG ADMINISTRATION ERROR [None]
  - PREMATURE BABY [None]
